FAERS Safety Report 5848923-0 (Version None)
Quarter: 2008Q3

REPORT INFORMATION
  Report Type: 
  Country: None (occurrence: None)
  Receive Date: 20080819
  Receipt Date: 20080806
  Transmission Date: 20090109
  Serious: Yes (Hospitalization)
  Sender: FDA-Public Use
  Company Number: PHHY2008BR17558

PATIENT
  Sex: Female

DRUGS (1)
  1. SANDIMMUNE [Suspect]
     Dosage: 150 MG, UNK
     Route: 042
     Dates: end: 20080805

REACTIONS (7)
  - COLOUR BLINDNESS ACQUIRED [None]
  - FATIGUE [None]
  - PHOTOPHOBIA [None]
  - SOMNOLENCE [None]
  - TREMOR [None]
  - VISION BLURRED [None]
  - VISUAL ACUITY REDUCED [None]
